FAERS Safety Report 10879165 (Version 1)
Quarter: 2015Q1

REPORT INFORMATION
  Report Type: Spontaneous
  Country: US (occurrence: None)
  Receive Date: 20150224
  Receipt Date: 20150224
  Transmission Date: 20150721
  Serious: Yes (Other)
  Sender: FDA-Public Use
  Company Number: None

PATIENT
  Age: 27 Year
  Sex: Female
  Weight: 122.47 kg

DRUGS (2)
  1. TOPIRAMATE. [Suspect]
     Active Substance: TOPIRAMATE
  2. BELVIQ [Suspect]
     Active Substance: LORCASERIN HYDROCHLORIDE
     Indication: WEIGHT DECREASED
     Dosage: 10 MG/1PILL ONCE DAILY TAKEN BY MOUTH
     Route: 048

REACTIONS (4)
  - Affect lability [None]
  - Drug interaction [None]
  - Incoherent [None]
  - Cognitive disorder [None]

NARRATIVE: CASE EVENT DATE: 20150216
